FAERS Safety Report 7962803-6 (Version None)
Quarter: 2011Q4

REPORT INFORMATION
  Report Type: 
  Country: None (occurrence: None)
  Receive Date: 20111207
  Receipt Date: 20111124
  Transmission Date: 20120403
  Serious: Yes (Death)
  Sender: FDA-Public Use
  Company Number: FR-ACTELION-A-CH2011-55496

PATIENT
  Sex: Female
  Weight: 59 kg

DRUGS (13)
  1. PREVISCAN [Concomitant]
  2. VOGALENE [Concomitant]
  3. TRACLEER [Suspect]
     Indication: PULMONARY HYPERTENSION
     Dosage: 125 MG, BID
     Route: 048
     Dates: start: 20100614
  4. ATARAX [Concomitant]
  5. NEXIUM [Concomitant]
  6. ZOLPIDEM [Concomitant]
  7. OXYGEN [Concomitant]
  8. ALDACTONE [Concomitant]
  9. POTASSIUM CHLORIDE [Concomitant]
  10. LASIX [Concomitant]
  11. REVATIO [Concomitant]
  12. TRACLEER [Suspect]
     Dosage: UNK , UNK
     Route: 048
     Dates: start: 20100106, end: 20100613
  13. CITALOPRAM HYDROBROMIDE [Concomitant]

REACTIONS (11)
  - LIVER INJURY [None]
  - LUNG INFECTION [None]
  - URINARY TRACT INFECTION [None]
  - OXYGEN SATURATION DECREASED [None]
  - RENAL FAILURE [None]
  - ALANINE AMINOTRANSFERASE INCREASED [None]
  - NAUSEA [None]
  - LIVER FUNCTION TEST ABNORMAL [None]
  - ASPARTATE AMINOTRANSFERASE INCREASED [None]
  - MULTI-ORGAN DISORDER [None]
  - GENERAL PHYSICAL HEALTH DETERIORATION [None]
